FAERS Safety Report 4439260-X (Version None)
Quarter: 2004Q3

REPORT INFORMATION
  Report Type: 
  Country: None (occurrence: None)
  Receive Date: 20040728
  Receipt Date: 20040419
  Transmission Date: 20050211
  Serious: No
  Sender: FDA-Public Use
  Company Number: USA040465312

PATIENT
  Age: 10 Year
  Sex: Female

DRUGS (3)
  1. STRATTERA [Suspect]
     Indication: ATTENTION DEFICIT/HYPERACTIVITY DISORDER
     Dosage: 40 MG DAY
     Dates: end: 20040417
  2. ZOLOFT [Concomitant]
  3. RISPERDAL [Concomitant]

REACTIONS (4)
  - ABNORMAL BEHAVIOUR [None]
  - HEADACHE [None]
  - HYPERTENSION [None]
  - MEMORY IMPAIRMENT [None]
